FAERS Safety Report 5892726-8 (Version None)
Quarter: 2008Q3

REPORT INFORMATION
  Report Type: 
  Country: None (occurrence: None)
  Receive Date: 20080923
  Receipt Date: 20080917
  Transmission Date: 20090109
  Serious: Yes (Hospitalization)
  Sender: FDA-Public Use
  Company Number: PHEH2008US08407

PATIENT
  Sex: Male

DRUGS (1)
  1. TEKTURNA [Suspect]

REACTIONS (1)
  - RENAL FAILURE ACUTE [None]
